FAERS Safety Report 23775563 (Version 2)
Quarter: 2024Q3

REPORT INFORMATION
  Report Type: Spontaneous
  Country: AU (occurrence: AU)
  Receive Date: 20240423
  Receipt Date: 20240727
  Transmission Date: 20241016
  Serious: Yes (Other)
  Sender: ABBVIE
  Company Number: AU-ABBVIE-5728323

PATIENT
  Sex: Female

DRUGS (4)
  1. DEXAMETHASONE [Suspect]
     Active Substance: DEXAMETHASONE
     Indication: Iridocyclitis
     Route: 065
  2. METHOTREXATE [Suspect]
     Active Substance: METHOTREXATE
     Indication: Neurosarcoidosis
     Route: 065
  3. PREDNISOLONE [Suspect]
     Active Substance: PREDNISOLONE
     Indication: Neurosarcoidosis
     Route: 065
     Dates: start: 2022
  4. PREDNISOLONE [Suspect]
     Active Substance: PREDNISOLONE
     Indication: Neurosarcoidosis
     Route: 065
     Dates: start: 202309

REACTIONS (5)
  - Rebound effect [Unknown]
  - Deafness neurosensory [Unknown]
  - Off label use [Unknown]
  - Off label use [Unknown]
  - CSF protein increased [Unknown]

NARRATIVE: CASE EVENT DATE: 20220101
